FAERS Safety Report 8342745-7 (Version None)
Quarter: 2012Q2

REPORT INFORMATION
  Report Type: 
  Country: None (occurrence: None)
  Receive Date: 20120503
  Receipt Date: 20111017
  Transmission Date: 20120825
  Serious: Yes (Life-Threatening, Hospitalization)
  Sender: FDA-Public Use
  Company Number: CZ-021560

PATIENT
  Age: 66 Year
  Sex: Male

DRUGS (2)
  1. (OTHERS) [Concomitant]
  2. (CHLORAMBUCIL) [Suspect]
     Indication: CHRONIC LYMPHOCYTIC LEUKAEMIA
     Dosage: 10MG/M2 AT DAYS 1-7 EVERY 28 DAYS ORAL
     Route: 048
     Dates: start: 20101116

REACTIONS (3)
  - C-REACTIVE PROTEIN INCREASED [None]
  - ORAL HERPES [None]
  - FEBRILE NEUTROPENIA [None]
